FAERS Safety Report 7830844-5 (Version None)
Quarter: 2011Q4

REPORT INFORMATION
  Report Type: 
  Country: None (occurrence: None)
  Receive Date: 20111021
  Receipt Date: 20111017
  Transmission Date: 20120403
  Serious: Yes (Other)
  Sender: FDA-Public Use
  Company Number: US-PFIZER INC-2011182857

PATIENT
  Sex: Male

DRUGS (3)
  1. LYRICA [Suspect]
     Indication: NERVE INJURY
     Dosage: UNKNOWN DOSE, THREE TIMES A DAY
     Route: 048
     Dates: start: 20110301, end: 20110427
  2. LYRICA [Suspect]
     Indication: BURNING SENSATION
  3. LISINOPRIL [Concomitant]
     Indication: HYPERTENSION
     Dosage: UNK

REACTIONS (6)
  - NEUROPATHY PERIPHERAL [None]
  - BURNING SENSATION [None]
  - SOMNOLENCE [None]
  - IMMOBILE [None]
  - PAIN IN EXTREMITY [None]
  - DRUG DOSE OMISSION [None]
